FAERS Safety Report 5460308-8 (Version None)
Quarter: 2007Q3

REPORT INFORMATION
  Report Type: 
  Country: None (occurrence: None)
  Receive Date: 20070919
  Receipt Date: 20070622
  Transmission Date: 20080115
  Serious: No
  Sender: FDA-Public Use
  Company Number: US-ASTRAZENECA-2007UW15013

PATIENT
  Age: 23 Year
  Sex: Female
  Weight: 52.2 kg

DRUGS (4)
  1. SEROQUEL [Suspect]
     Indication: BIPOLAR DISORDER
     Route: 048
  2. SEROQUEL [Suspect]
     Route: 048
     Dates: end: 20070601
  3. SEROQUEL [Suspect]
     Route: 048
  4. MARIJUANA [Concomitant]

REACTIONS (4)
  - DRUG INEFFECTIVE [None]
  - FEAR [None]
  - NERVOUSNESS [None]
  - TRICHOTILLOMANIA [None]
